FAERS Safety Report 5122699-7 (Version None)
Quarter: 2006Q4

REPORT INFORMATION
  Report Type: 
  Country: None (occurrence: None)
  Receive Date: 20061005
  Receipt Date: 20061005
  Transmission Date: 20070319
  Serious: Yes (Disabling, Other)
  Sender: FDA-Public Use
  Company Number: None

PATIENT
  Age: 56 Year
  Sex: Female
  Weight: 63.05 kg

DRUGS (2)
  1. RING STOP [Suspect]
     Indication: DRUG THERAPY
     Dosage: SEE IMAGE
     Dates: start: 20060312
  2. RING STOP [Suspect]
     Indication: DRUG THERAPY
     Dosage: SEE IMAGE
     Dates: start: 20060720

REACTIONS (4)
  - CONDITION AGGRAVATED [None]
  - DEAFNESS [None]
  - DRUG INEFFECTIVE [None]
  - HYPERACUSIS [None]
